FAERS Safety Report 15139494 (Version 3)
Quarter: 2023Q1

REPORT INFORMATION
  Report Type: Other
  Country: GB (occurrence: None)
  Receive Date: 20180713
  Receipt Date: 20230302
  Transmission Date: 20230417
  Serious: Yes (Hospitalization)
  Sender: FDA-Public Use
  Company Number: GB-ROCHE-2050789

PATIENT
  Sex: Female

DRUGS (3)
  1. TOCILIZUMAB [Suspect]
     Active Substance: TOCILIZUMAB
     Indication: Rheumatoid arthritis
     Route: 058
     Dates: start: 20150921
  2. CITALOPRAM [Concomitant]
     Active Substance: CITALOPRAM HYDROBROMIDE
  3. OMEPRAZOLE [Concomitant]
     Active Substance: OMEPRAZOLE

REACTIONS (11)
  - Gingivitis [Unknown]
  - Gingival disorder [Unknown]
  - Infection [Unknown]
  - Mobility decreased [Unknown]
  - Hordeolum [Unknown]
  - Abscess [Unknown]
  - Eye swelling [Unknown]
  - Gingival abscess [Unknown]
  - Gingival swelling [Unknown]
  - Viral infection [Unknown]
  - Off label use [Unknown]
